FAERS Safety Report 13685396 (Version 3)
Quarter: 2018Q3

REPORT INFORMATION
  Report Type: Report from Study
  Country: JP (occurrence: JP)
  Receive Date: 20170623
  Receipt Date: 20180731
  Transmission Date: 20181010
  Serious: Yes (Hospitalization, Other)
  Sender: FDA-Public Use
  Company Number: JP-AMGEN-JPNNI2017094261

PATIENT
  Age: 70 Year
  Sex: Male

DRUGS (11)
  1. REGPARA [Suspect]
     Active Substance: CINACALCET HYDROCHLORIDE
     Indication: PRODUCT USED FOR UNKNOWN INDICATION
     Dosage: UNK
     Route: 048
     Dates: start: 20150603, end: 20150916
  2. REGPARA [Suspect]
     Active Substance: CINACALCET HYDROCHLORIDE
     Dosage: UNK
     Route: 048
     Dates: start: 20150917, end: 20160303
  3. EPOETIN ALFA [Suspect]
     Active Substance: ERYTHROPOIETIN
     Indication: PRODUCT USED FOR UNKNOWN INDICATION
     Dosage: UNK
     Route: 042
     Dates: start: 20170513, end: 20171031
  4. REGPARA [Suspect]
     Active Substance: CINACALCET HYDROCHLORIDE
     Dosage: UNK
     Route: 048
     Dates: start: 20160607
  5. EPOETIN ALFA [Suspect]
     Active Substance: ERYTHROPOIETIN
     Dosage: UNK
     Route: 042
     Dates: start: 20180118
  6. PHOSBLOCK [Suspect]
     Active Substance: FERRIC HYDROXIDE
     Indication: PRODUCT USED FOR UNKNOWN INDICATION
     Dosage: UNK
     Route: 048
     Dates: start: 20150603
  7. DARBEPOETIN ALFA [Suspect]
     Active Substance: DARBEPOETIN ALFA
     Dosage: UNK
     Route: 042
     Dates: start: 20160512
  8. DARBEPOETIN ALFA [Suspect]
     Active Substance: DARBEPOETIN ALFA
     Dosage: UNK
     Route: 042
     Dates: start: 20151022, end: 20160114
  9. DARBEPOETIN ALFA [Suspect]
     Active Substance: DARBEPOETIN ALFA
     Dosage: UNK
     Route: 042
     Dates: start: 20160204, end: 20160414
  10. DARBEPOETIN ALFA [Suspect]
     Active Substance: DARBEPOETIN ALFA
     Dosage: UNK
     Route: 042
     Dates: start: 20160421, end: 20160505
  11. DARBEPOETIN ALFA [Suspect]
     Active Substance: DARBEPOETIN ALFA
     Indication: PRODUCT USED FOR UNKNOWN INDICATION
     Dosage: UNK
     Route: 042
     Dates: start: 20150604, end: 20151015

REACTIONS (4)
  - Hospitalisation [Recovering/Resolving]
  - Hospitalisation [Recovering/Resolving]
  - Peptic ulcer [Unknown]
  - Gastritis [Unknown]

NARRATIVE: CASE EVENT DATE: 20170123
